FAERS Safety Report 11562076 (Version 3)
Quarter: 2015Q4

REPORT INFORMATION
  Report Type: Spontaneous
  Country: US (occurrence: US)
  Receive Date: 20150916
  Receipt Date: 20151110
  Transmission Date: 20160304
  Serious: No
  Sender: FDA-Public Use
  Company Number: US-ELI_LILLY_AND_COMPANY-US200811004938

PATIENT
  Sex: Female
  Weight: 43.54 kg

DRUGS (6)
  1. ATACAND [Concomitant]
     Active Substance: CANDESARTAN CILEXETIL
  2. TOPROL XL [Concomitant]
     Active Substance: METOPROLOL SUCCINATE
  3. FORTEO [Suspect]
     Active Substance: TERIPARATIDE
     Dosage: 20 UG, QD
     Dates: start: 20110409
  4. FORTEO [Suspect]
     Active Substance: TERIPARATIDE
     Dosage: 20 UG, QD
     Route: 065
  5. FORTEO [Suspect]
     Active Substance: TERIPARATIDE
     Indication: OSTEOPOROSIS
     Dosage: 20 UG, QD
     Dates: start: 2008
  6. FORTEO [Suspect]
     Active Substance: TERIPARATIDE
     Dosage: 20 UG, QD
     Route: 065

REACTIONS (16)
  - Gait disturbance [Not Recovered/Not Resolved]
  - Pain [Not Recovered/Not Resolved]
  - Asthenia [Not Recovered/Not Resolved]
  - Accidental overdose [Unknown]
  - Pain in jaw [Unknown]
  - Hypertension [Unknown]
  - Headache [Unknown]
  - Dry mouth [Unknown]
  - Nausea [Not Recovered/Not Resolved]
  - Medication error [Unknown]
  - Thinking abnormal [Not Recovered/Not Resolved]
  - Dental caries [Unknown]
  - Neck pain [Unknown]
  - Feeling abnormal [Not Recovered/Not Resolved]
  - Frustration [Not Recovered/Not Resolved]
  - Spinal pain [Unknown]

NARRATIVE: CASE EVENT DATE: 2008
